FAERS Safety Report 8126724-0 (Version None)
Quarter: 2012Q1

REPORT INFORMATION
  Report Type: 
  Country: None (occurrence: None)
  Receive Date: 20120210
  Receipt Date: 20120131
  Transmission Date: 20120608
  Serious: No
  Sender: FDA-Public Use
  Company Number: US-BIOGENIDEC-2012BI004169

PATIENT
  Age: 47 Year
  Sex: Male

DRUGS (3)
  1. TYSABRI [Suspect]
     Route: 042
     Dates: start: 20110526
  2. TYSABRI [Suspect]
     Route: 042
     Dates: start: 20080818, end: 20101014
  3. TYSABRI [Suspect]
     Indication: MULTIPLE SCLEROSIS
     Route: 042
     Dates: start: 20050120, end: 20050120

REACTIONS (4)
  - MUSCULAR WEAKNESS [None]
  - MUSCLE SPASMS [None]
  - TREMOR [None]
  - VISION BLURRED [None]
